FAERS Safety Report 4352335-9 (Version None)
Quarter: 2004Q2

REPORT INFORMATION
  Report Type: 
  Country: None (occurrence: None)
  Receive Date: 20040503
  Receipt Date: 20040412
  Transmission Date: 20050107
  Serious: Yes (Other)
  Sender: FDA-Public Use
  Company Number: CIO04009583

PATIENT
  Age: 8 Year
  Sex: Male
  Weight: 34 kg

DRUGS (2)
  1. 44D COUGH/HEAD CONGESTION RELIEF SYRUP, CHERRY FLAVOR(PSEUDOEPHEDRINE [Suspect]
     Dosage: SEE IMAGE
     Route: 048
     Dates: start: 20040322, end: 20040331
  2. 44D COUGH/HEAD CONGESTION RELIEF SYRUP, CHERRY FLAVOR(PSEUDOEPHEDRINE [Suspect]
     Dosage: SEE IMAGE
     Route: 048
     Dates: start: 20040401, end: 20040401

REACTIONS (3)
  - CONVULSION [None]
  - EDUCATIONAL PROBLEM [None]
  - UNDERDOSE [None]
